FAERS Safety Report 9191150 (Version 1)
Quarter: 2013Q1

REPORT INFORMATION
  Report Type: Report from Study
  Country: PL (occurrence: PL)
  Receive Date: 20130326
  Receipt Date: 20130326
  Transmission Date: 20140127
  Serious: Yes (Hospitalization, Other)
  Sender: FDA-Public Use
  Company Number: PL-ROCHE-740996

PATIENT
  Age: 51 Year
  Sex: Male
  Weight: 67 kg

DRUGS (7)
  1. RITUXIMAB [Suspect]
     Indication: CHRONIC LYMPHOCYTIC LEUKAEMIA
     Dosage: FREQUENCY : 1, PERMANENTLY DISCONTINUED
     Route: 042
     Dates: start: 20101005, end: 20101109
  2. CYCLOPHOSPHAMIDE [Suspect]
     Indication: CHRONIC LYMPHOCYTIC LEUKAEMIA
     Dosage: FREQUENCY: 3, PERMANENTLY DISCONTINUED
     Route: 042
     Dates: start: 20101006, end: 20101103
  3. CLADRIBINE [Suspect]
     Indication: CHRONIC LYMPHOCYTIC LEUKAEMIA
     Dosage: FREQUENCY: 3, PERMANENTLY DISCONTINUED
     Route: 042
     Dates: start: 20101006, end: 20101103
  4. TRANEXAMIC ACID [Concomitant]
     Route: 065
     Dates: start: 20101108
  5. ETHAMSYLATE [Concomitant]
     Route: 065
     Dates: start: 20101108
  6. CIPROFLOXACIN [Concomitant]
     Route: 065
     Dates: start: 20101108, end: 20101111
  7. METHYLPREDNISOLONE [Concomitant]
     Route: 065
     Dates: start: 20101109, end: 20101111

REACTIONS (2)
  - Autoimmune thrombocytopenia [Recovered/Resolved]
  - Aplasia pure red cell [Recovered/Resolved]
